FAERS Safety Report 6885317-3 (Version None)
Quarter: 2010Q3

REPORT INFORMATION
  Report Type: 
  Country: None (occurrence: None)
  Receive Date: 20100729
  Receipt Date: 20100729
  Transmission Date: 20110219
  Serious: Yes (Other)
  Sender: FDA-Public Use
  Company Number: None

PATIENT
  Age: 42 Year
  Sex: Male
  Weight: 117.9352 kg

DRUGS (1)
  1. STANAZOLOL/TESTOSTERONE SUSP. 50/50MG PER ML PALM BEACH PHARMACY INC. [Suspect]
     Indication: ANDROGEN DEFICIENCY
     Dosage: 1 ML THREE TIMES A WEEK IM
     Route: 030
     Dates: start: 20070101, end: 20100728

REACTIONS (1)
  - CELLULITIS [None]
